FAERS Safety Report 11038335 (Version 2)
Quarter: 2015Q2

REPORT INFORMATION
  Report Type: Spontaneous
  Country: JP (occurrence: JP)
  Receive Date: 20150416
  Receipt Date: 20150521
  Transmission Date: 20150821
  Serious: Yes (Death, Life-Threatening, Other)
  Sender: FDA-Public Use
  Company Number: JP-PFIZER INC-2015126755

PATIENT
  Age: 69 Year
  Sex: Male

DRUGS (1)
  1. ZYVOX [Suspect]
     Active Substance: LINEZOLID
     Indication: ENTEROCOLITIS
     Dosage: 1200 MG, DAILY

REACTIONS (2)
  - Cardiac failure [Fatal]
  - Respiratory failure [Fatal]

NARRATIVE: CASE EVENT DATE: 20120302
